FAERS Safety Report 7365154-6 (Version None)
Quarter: 2011Q1

REPORT INFORMATION
  Report Type: 
  Country: None (occurrence: None)
  Receive Date: 20110321
  Receipt Date: 20110318
  Transmission Date: 20110831
  Serious: Yes (Hospitalization)
  Sender: FDA-Public Use
  Company Number: US-MERCK-1102USA01386

PATIENT
  Age: 49 Year
  Sex: Male

DRUGS (6)
  1. PERCOCET [Concomitant]
     Route: 065
  2. EPIVIR [Concomitant]
     Route: 065
  3. ISENTRESS [Suspect]
     Indication: HIV INFECTION
     Route: 048
     Dates: start: 20090924
  4. PREZISTA [Concomitant]
     Route: 065
  5. PROTONIX [Concomitant]
     Route: 065
  6. NORVIR [Concomitant]
     Route: 065

REACTIONS (1)
  - NEOPLASM MALIGNANT [None]
